FAERS Safety Report 10885452 (Version 1)
Quarter: 2015Q1

REPORT INFORMATION
  Report Type: Spontaneous
  Country: IL (occurrence: IL)
  Receive Date: 20150304
  Receipt Date: 20150304
  Transmission Date: 20150721
  Serious: Yes (Death)
  Sender: FDA-Public Use
  Company Number: IL-PFIZER INC-2015076142

PATIENT
  Age: 55 Year
  Sex: Male

DRUGS (1)
  1. SUTENT [Suspect]
     Active Substance: SUNITINIB MALATE
     Indication: HEPATIC NEOPLASM
     Dosage: 25 MG, 1X/DAY
     Route: 048
     Dates: start: 20150215

REACTIONS (2)
  - Death [Fatal]
  - Product use issue [Unknown]
